FAERS Safety Report 9235733 (Version 2)
Quarter: 2013Q2

REPORT INFORMATION
  Report Type: Spontaneous
  Country: US (occurrence: None)
  Receive Date: 20121031
  Receipt Date: 20130107
  Transmission Date: 20140414
  Serious: Yes (Hospitalization, Other)
  Sender: FDA-Public Use
  Company Number: PHEH2012US016564

PATIENT
  Age: 44 Year
  Sex: Male
  Weight: 77.1 kg

DRUGS (6)
  1. GILENYA [Suspect]
     Indication: MULTIPLE SCLEROSIS
     Route: 048
     Dates: start: 20120719
  2. PROVIGIL (MODAFINIL) [Concomitant]
  3. VICODIN (HYDROCODONE BITARTRATE, PARACETAMOL) [Concomitant]
  4. AMBIEN (ZOLPIDEM TARTRATE) [Concomitant]
  5. IBUPROFEN (IBUPROFEN) [Concomitant]
  6. OXYBUTYNIN (OXYBUTYNIN) [Concomitant]

REACTIONS (16)
  - Multiple sclerosis [None]
  - Urinary tract infection [None]
  - Back pain [None]
  - Neutrophil count decreased [None]
  - Neutrophil count increased [None]
  - Monocyte count increased [None]
  - Lymphocyte count decreased [None]
  - White blood cell count decreased [None]
  - Cystitis [None]
  - Pyelonephritis [None]
  - Pyrexia [None]
  - Ureteritis [None]
  - Visual acuity reduced [None]
  - Chills [None]
  - Micturition urgency [None]
  - Gait disturbance [None]
